FAERS Safety Report 8216532-4 (Version None)
Quarter: 2012Q1

REPORT INFORMATION
  Report Type: 
  Country: None (occurrence: None)
  Receive Date: 20120316
  Receipt Date: 20120312
  Transmission Date: 20120608
  Serious: Yes (Other)
  Sender: FDA-Public Use
  Company Number: US-PFIZER INC-2012065783

PATIENT
  Sex: Female
  Weight: 67.12 kg

DRUGS (6)
  1. NEXIUM [Concomitant]
     Dosage: UNK
  2. LAMICTAL [Concomitant]
     Dosage: UNK
  3. REQUIP [Concomitant]
     Dosage: UNK
  4. LIPITOR [Suspect]
     Indication: BLOOD CHOLESTEROL INCREASED
     Dosage: 40 MG, 1X/DAY
     Route: 048
     Dates: start: 20030101
  5. DIVALPROEX SODIUM [Concomitant]
     Dosage: UNK
  6. EFFEXOR XR [Suspect]
     Indication: DEPRESSION
     Dosage: 150 MG, 1X/DAY
     Route: 048
     Dates: start: 20030101

REACTIONS (2)
  - KNEE ARTHROPLASTY [None]
  - PAIN IN EXTREMITY [None]
